FAERS Safety Report 10568431 (Version 2)
Quarter: 2014Q4

REPORT INFORMATION
  Report Type: Spontaneous
  Country: FR (occurrence: FR)
  Receive Date: 20141106
  Receipt Date: 20141113
  Transmission Date: 20150529
  Serious: Yes (Hospitalization)
  Sender: FDA-Public Use
  Company Number: FR-009507513-1411FRA000932

PATIENT
  Age: 27 Year
  Sex: Female

DRUGS (8)
  1. FOLLITROPIN BETA [Suspect]
     Active Substance: FOLLITROPIN
     Dosage: UNK
     Route: 058
     Dates: start: 20130824, end: 20131013
  2. FOLLITROPIN BETA [Suspect]
     Active Substance: FOLLITROPIN
     Dosage: DAILY DOSE: 75 IU/0.5 ML (75 IU, 1 IN 1 D)
     Route: 058
     Dates: start: 20140514, end: 20140525
  3. SYNAREL [Suspect]
     Active Substance: NAFARELIN ACETATE
     Dosage: UNK
     Route: 045
     Dates: start: 201403
  4. FOLLITROPIN BETA [Suspect]
     Active Substance: FOLLITROPIN
     Indication: ARTIFICIAL INSEMINATION BY PARTNER
     Dosage: UNK
     Route: 058
     Dates: start: 20130313, end: 20130408
  5. FOLLITROPIN BETA [Suspect]
     Active Substance: FOLLITROPIN
     Dosage: UNK
     Route: 058
     Dates: start: 201403
  6. PROGESTAN [Suspect]
     Active Substance: PROGESTERONE
     Indication: ARTIFICIAL INSEMINATION BY PARTNER
     Dosage: UNK
     Route: 067
     Dates: start: 20140528, end: 20140714
  7. OVITRELLE [Suspect]
     Active Substance: CHORIOGONADOTROPIN ALFA
     Indication: ARTIFICIAL INSEMINATION BY PARTNER
     Dosage: 1 DF, ONCE
     Route: 058
     Dates: start: 20140526, end: 20140526
  8. SYNAREL [Suspect]
     Active Substance: NAFARELIN ACETATE
     Indication: ARTIFICIAL INSEMINATION BY PARTNER
     Dosage: DAILY DOSE: 0.2 MG/DOSE
     Route: 045
     Dates: start: 20140514, end: 20140525

REACTIONS (1)
  - Erythema nodosum [Recovering/Resolving]

NARRATIVE: CASE EVENT DATE: 201405
